FAERS Safety Report 26143055 (Version 1)
Quarter: 2025Q4

REPORT INFORMATION
  Report Type: Spontaneous
  Country: US (occurrence: US)
  Receive Date: 20251211
  Receipt Date: 20251211
  Transmission Date: 20260117
  Serious: No
  Sender: IPSEN BIOPHARMACEUTICALS, INC.
  Company Number: US-IPSEN Group, Research and Development-2025-30222

PATIENT
  Sex: Male
  Weight: 132 kg

DRUGS (15)
  1. SOMATULINE DEPOT [Suspect]
     Active Substance: LANREOTIDE ACETATE
     Indication: Adrenal gland cancer
     Dosage: 120 MG/0.5 ML PFS UNDER THE SKIN
  2. SELENIUM [Concomitant]
     Active Substance: SELENIUM
  3. VITAMIN D2 [Concomitant]
     Active Substance: ERGOCALCIFEROL
  4. VITAMIN D3 [Concomitant]
     Active Substance: CHOLECALCIFEROL
  5. VITAMIN E [Concomitant]
     Active Substance: .ALPHA.-TOCOPHEROL
  6. ZINC [Concomitant]
     Active Substance: ZINC
  7. PANTOPRAZOLE SODIUM [Concomitant]
     Active Substance: PANTOPRAZOLE SODIUM
     Dosage: 40 MG TABLET DR
  8. METFORMIN HYDROCHLORIDE [Concomitant]
     Active Substance: METFORMIN HYDROCHLORIDE
  9. ASCORBIC ACID [Concomitant]
     Active Substance: ASCORBIC ACID
  10. ALBUTEROL SULFATE [Concomitant]
     Active Substance: ALBUTEROL SULFATE
  11. JARDIANCE [Concomitant]
     Active Substance: EMPAGLIFLOZIN
  12. MOUNJARO [Concomitant]
     Active Substance: TIRZEPATIDE
     Dosage: 10MG/0.5ML PEN INJCTR
  13. CITALOPRAM HYDROBROMIDE [Concomitant]
     Active Substance: CITALOPRAM HYDROBROMIDE
  14. ATORVASTATIN CALCIUM [Concomitant]
     Active Substance: ATORVASTATIN CALCIUM
  15. DEVICE [Concomitant]
     Active Substance: DEVICE
     Dosage: LANCETS 30 GAUGE EACH

REACTIONS (1)
  - Constipation [Unknown]
